FAERS Safety Report 14189779 (Version 6)
Quarter: 2018Q3

REPORT INFORMATION
  Report Type: Report from Study
  Country: GR (occurrence: GR)
  Receive Date: 20171115
  Receipt Date: 20180914
  Transmission Date: 20181010
  Serious: Yes (Hospitalization)
  Sender: FDA-Public Use
  Company Number: GR-ROCHE-2020333

PATIENT
  Age: 59 Year
  Sex: Female
  Weight: 56 kg

DRUGS (6)
  1. VEMURAFENIB. [Suspect]
     Active Substance: VEMURAFENIB
     Indication: MALIGNANT MELANOMA
     Dosage: DATE OF MOST RECENT DOSE OF VEMURAFENIB PRIOR TO AE ONSET : 29/OCT/2017?DATE OF MOST RECENT DOSE OF
     Route: 048
     Dates: start: 20171006
  2. COBIMETINIB. [Suspect]
     Active Substance: COBIMETINIB
     Indication: MALIGNANT MELANOMA
     Dosage: DATE OF MOST RECENT DOSE OF COBIMETINIB (60 MG) PRIOR TO AE ONSET: 29/OCT/2017?DATE OF MOST RECENT D
     Route: 048
     Dates: start: 20171006
  3. BRIKLIN [Concomitant]
     Active Substance: AMIKACIN
     Indication: PYREXIA
     Route: 042
     Dates: start: 20171101, end: 20171103
  4. BLINDED ATEZOLIZUMAB [Suspect]
     Active Substance: ATEZOLIZUMAB
     Indication: MALIGNANT MELANOMA
     Dosage: MOST RECENT DOSE ON 17/NOV/2017
     Route: 042
     Dates: start: 20171117
  5. AUGMENTIN [Concomitant]
     Active Substance: AMOXICILLIN\CLAVULANATE POTASSIUM
     Indication: PYREXIA
     Route: 048
     Dates: start: 20171012, end: 20171018
  6. SOLVETAN [Concomitant]
     Indication: PYREXIA
     Route: 042
     Dates: start: 20171101, end: 20171103

REACTIONS (3)
  - Pyrexia [Recovered/Resolved]
  - White blood cell count decreased [Recovered/Resolved]
  - Neutrophil count decreased [Recovered/Resolved]

NARRATIVE: CASE EVENT DATE: 20171101
